FAERS Safety Report 5729262-5 (Version None)
Quarter: 2008Q2

REPORT INFORMATION
  Report Type: 
  Country: None (occurrence: None)
  Receive Date: 20080506
  Receipt Date: 20080425
  Transmission Date: 20081010
  Serious: Yes (Life-Threatening, Hospitalization)
  Sender: FDA-Public Use
  Company Number: JM-NOVOPROD-274259

PATIENT
  Sex: Female

DRUGS (7)
  1. PENFILL 30R CHU [Suspect]
     Indication: TYPE 2 DIABETES MELLITUS
     Dosage: 15 IU, QD
     Dates: end: 20080410
  2. PENFILL 30R CHU [Suspect]
     Dosage: 12+0+4 IU
     Route: 058
     Dates: start: 20080413
  3. AMLODIN [Concomitant]
     Indication: HYPERTENSION
  4. LANSOPRAZOLE [Concomitant]
  5. LACTOMIN [Concomitant]
     Indication: DIABETIC NEPHROPATHY
  6. LAXOBERON [Concomitant]
     Indication: DIABETIC NEUROPATHY
  7. LENDORMIN [Concomitant]

REACTIONS (3)
  - HYPOGLYCAEMIC UNCONSCIOUSNESS [None]
  - INTENTIONAL OVERDOSE [None]
  - SUICIDE ATTEMPT [None]
